FAERS Safety Report 8351418-6 (Version None)
Quarter: 2012Q2

REPORT INFORMATION
  Report Type: 
  Country: None (occurrence: None)
  Receive Date: 20120510
  Receipt Date: 20120507
  Transmission Date: 20120825
  Serious: Yes (Hospitalization)
  Sender: FDA-Public Use
  Company Number: US-ROCHE-1015666

PATIENT
  Sex: Male
  Weight: 46.7 kg

DRUGS (3)
  1. AVASTIN [Suspect]
     Indication: HEAD AND NECK CANCER
     Route: 042
     Dates: start: 20110809, end: 20110920
  2. PEMETREXED DISODIUM [Suspect]
     Indication: HEAD AND NECK CANCER
     Route: 042
     Dates: start: 20110809, end: 20110920
  3. ERBITUX [Suspect]
     Indication: HEAD AND NECK CANCER
     Dosage: 400/250 MG WEEKLY
     Route: 042
     Dates: start: 20110801, end: 20110929

REACTIONS (2)
  - HYPOVOLAEMIC SHOCK [None]
  - PNEUMONIA [None]
